FAERS Safety Report 21189310 (Version 1)
Quarter: 2022Q3

REPORT INFORMATION
  Report Type: Spontaneous
  Country: PK (occurrence: PK)
  Receive Date: 20220809
  Receipt Date: 20220809
  Transmission Date: 20221026
  Serious: Yes (Other)
  Sender: FDA-Public Use
  Company Number: PK-PFIZER INC-PV202200035006

PATIENT
  Age: 40 Year
  Sex: Female

DRUGS (13)
  1. ENBREL [Suspect]
     Active Substance: ETANERCEPT
     Indication: Rheumatoid arthritis
     Dosage: 50 MG, WEEKLY
     Route: 058
     Dates: start: 20220726
  2. LEFORA [Concomitant]
     Dosage: HALF TABLET DAILY AFTER BREAKFAST, CONTINUE
  3. PLAQUENIL [Concomitant]
     Active Substance: HYDROXYCHLOROQUINE SULFATE
     Dosage: 1+1 IN MORNING AND EVENING, CONTINUE
  4. CHONDROITIN SULFATE A\GLUCOSAMINE [Concomitant]
     Active Substance: CHONDROITIN SULFATE A\GLUCOSAMINE
     Dosage: 1+1 IN MORNING AND EVENING, CONTINUE
  5. DELTACORTRIL [Concomitant]
     Active Substance: PREDNISOLONE
     Dosage: 1/2 + 1/2 IN MORNING AND EVENING CONTINUE
  6. Ors [Concomitant]
     Dosage: CONSUME HALF PACK AFTER DISSOLVING IN WATER, CONTINUE
  7. PANADOL [Concomitant]
     Active Substance: ACETAMINOPHEN
     Dosage: 1+1 IN MORNING AND EVENING AS PER NEED FOR PAIN
  8. CAD3 [Concomitant]
     Dosage: 1 TABLET DAILY IN EVENING, CONTINUE
  9. Pharmaton [Concomitant]
     Dosage: 1 TABLET DAILY AFTER BREAKFAST, CONTINUE
  10. NUBEROL [Concomitant]
     Dosage: 1+1 IN MORNING AND EVENING, CONTINUE
  11. Selanz sr [Concomitant]
     Dosage: 1 TABLET HALF AN HOUR BEFORE BREAKFAST, CONTINUE
  12. TIZANIDINE [Concomitant]
     Active Substance: TIZANIDINE
     Dosage: 1 TABLET DAILY AT NIGHT
  13. VITAMIN D NOS [Concomitant]
     Active Substance: VITAMIN D NOS
     Dosage: ONCE A MONTH

REACTIONS (14)
  - Eosinophilia myalgia syndrome [Unknown]
  - Rheumatoid factor increased [Unknown]
  - Deformity [Unknown]
  - Arthralgia [Unknown]
  - Asthenia [Unknown]
  - Joint noise [Unknown]
  - Joint range of motion decreased [Unknown]
  - Pain [Unknown]
  - Muscle spasms [Unknown]
  - Haemoglobin decreased [Unknown]
  - Red blood cell sedimentation rate increased [Unknown]
  - Blood creatinine decreased [Unknown]
  - Osteoarthritis [Unknown]
  - Diarrhoea [Unknown]
